FAERS Safety Report 8366698-0 (Version None)
Quarter: 2012Q2

REPORT INFORMATION
  Report Type: 
  Country: None (occurrence: None)
  Receive Date: 20120517
  Receipt Date: 20120511
  Transmission Date: 20120825
  Serious: No
  Sender: FDA-Public Use
  Company Number: US-PFIZER INC-2012098521

PATIENT
  Sex: Male
  Weight: 97 kg

DRUGS (6)
  1. SOTALOL [Concomitant]
     Dosage: 80 MG, 2X/DAY
     Route: 065
  2. ALDACTONE [Suspect]
     Indication: CARDIAC FAILURE CHRONIC
  3. ALDACTONE [Suspect]
     Indication: BLOOD PRESSURE ABNORMAL
     Dosage: 25 MG, 1X/DAY IN THE MORNING
     Route: 048
     Dates: start: 20110913, end: 20120201
  4. METOPROLOL SUCCINATE [Concomitant]
     Dosage: 100 MG, 2X/DAY
     Route: 065
  5. PRADAXA [Concomitant]
     Indication: CEREBROVASCULAR ACCIDENT PROPHYLAXIS
     Dosage: 150 MG, 2X/DAY
     Dates: start: 20110101
  6. LOSARTAN POTASSIUM [Concomitant]
     Dosage: 25 MG, DAILY
     Route: 065

REACTIONS (1)
  - NIPPLE PAIN [None]
